FAERS Safety Report 15688074 (Version 1)
Quarter: 2018Q4

REPORT INFORMATION
  Report Type: Spontaneous
  Country: DE (occurrence: DE)
  Receive Date: 20181205
  Receipt Date: 20181205
  Transmission Date: 20190205
  Serious: Yes (Disabling, Other)
  Sender: FDA-Public Use
  Company Number: DE-TEVA-2018-DE-982095

PATIENT
  Age: 51 Year
  Sex: Male

DRUGS (4)
  1. NORTRILEN [Interacting]
     Active Substance: NORTRIPTYLINE
     Dosage: 250 MILLIGRAM DAILY; 125-125-0
     Route: 065
     Dates: start: 19900101
  2. HYPNOREX [Interacting]
     Active Substance: LITHIUM CARBONATE
     Dosage: 1400 MILLIGRAM DAILY; 600-0-800
     Route: 065
     Dates: start: 19900101
  3. MELLERIL [Suspect]
     Active Substance: THIORIDAZINE HYDROCHLORIDE
     Dosage: 400 MILLIGRAM DAILY; 200-200-0
     Route: 065
     Dates: start: 19900101
  4. SAROTEN [Interacting]
     Active Substance: AMITRIPTYLINE
     Dosage: 75-0-75
     Route: 065
     Dates: start: 19900101

REACTIONS (7)
  - Oedema peripheral [Unknown]
  - Exercise tolerance decreased [Unknown]
  - Drug interaction [Unknown]
  - Cardiac failure [Recovered/Resolved with Sequelae]
  - Dyspnoea [Unknown]
  - Orthopnoea [Unknown]
  - Nocturia [Unknown]

NARRATIVE: CASE EVENT DATE: 19991226
